FAERS Safety Report 9950938 (Version 1)
Quarter: 2014Q1

REPORT INFORMATION
  Report Type: Report from Study
  Country: US (occurrence: US)
  Receive Date: 20140304
  Receipt Date: 20140304
  Transmission Date: 20141002
  Serious: No
  Sender: FDA-Public Use
  Company Number: US-ABBVIE-13P-163-1066865-00

PATIENT
  Age: 83 Year
  Sex: Female

DRUGS (8)
  1. HUMIRA [Suspect]
     Indication: CROHN^S DISEASE
     Dates: start: 20130131
  2. PREDNISONE [Concomitant]
     Indication: CROHN^S DISEASE
     Dosage: 10 MG DAILY
     Route: 048
  3. ANTI DIARRHEAL MEDICATION [Concomitant]
     Indication: DIARRHOEA
     Dosage: AT BEDTIME
     Route: 048
  4. METFORMIN [Concomitant]
     Indication: DIABETES MELLITUS
     Dosage: 500 MG DAILY
     Route: 048
  5. VITAMIN B12 [Concomitant]
     Indication: CROHN^S DISEASE
     Route: 048
  6. VITAMIN B12 [Concomitant]
     Indication: ANAEMIA
  7. ATENOLOL [Concomitant]
     Indication: HYPERTENSION
     Dosage: 50 MG DAILY
     Route: 048
  8. GLYBURIDE [Concomitant]
     Indication: DIABETES MELLITUS
     Dosage: 40 MG DAILY
     Route: 048

REACTIONS (2)
  - Diarrhoea [Not Recovered/Not Resolved]
  - Abdominal pain [Not Recovered/Not Resolved]
